FAERS Safety Report 14499759 (Version 1)
Quarter: 2018Q1

REPORT INFORMATION
  Report Type: Spontaneous
  Country: US (occurrence: US)
  Receive Date: 20180207
  Receipt Date: 20180207
  Transmission Date: 20180509
  Serious: No
  Sender: FDA-Public Use
  Company Number: US-GLAXOSMITHKLINE-US2018017974

PATIENT
  Sex: Female

DRUGS (5)
  1. LOSARTIN [Concomitant]
     Active Substance: LOSARTAN
  2. HYDROCHLOROTHIAZIDE. [Concomitant]
     Active Substance: HYDROCHLOROTHIAZIDE
  3. ADVAIR DISKUS [Suspect]
     Active Substance: FLUTICASONE PROPIONATE\SALMETEROL XINAFOATE
     Indication: ASTHMA
     Dosage: 1 PUFF(S), 1D
     Route: 055
     Dates: start: 2012
  4. CITALOPRAM [Concomitant]
     Active Substance: CITALOPRAM HYDROBROMIDE
  5. PRAVASTATIN. [Concomitant]
     Active Substance: PRAVASTATIN

REACTIONS (5)
  - Overdose [Unknown]
  - Expired product administered [Recovered/Resolved]
  - Underdose [Unknown]
  - Drug ineffective [Recovered/Resolved]
  - Intentional product misuse [Unknown]
